FAERS Safety Report 18345654 (Version 1)
Quarter: 2020Q4

REPORT INFORMATION
  Report Type: Spontaneous
  Country: SE (occurrence: SE)
  Receive Date: 20201005
  Receipt Date: 20201005
  Transmission Date: 20210114
  Serious: Yes (Life-Threatening, Hospitalization)
  Sender: FDA-Public Use
  Company Number: SE-EPIC PHARMA LLC-2020EPC00298

PATIENT
  Age: 70 Year
  Sex: Female

DRUGS (3)
  1. CITALOPRAM [Suspect]
     Active Substance: CITALOPRAM HYDROBROMIDE
     Route: 048
  2. PROPIOMAZINE [Concomitant]
     Active Substance: PROPIOMAZINE
     Route: 065
  3. OXAZEPAM. [Concomitant]
     Active Substance: OXAZEPAM
     Route: 065

REACTIONS (4)
  - Overdose [Recovered/Resolved]
  - Serotonin syndrome [Recovered/Resolved]
  - Distributive shock [Recovering/Resolving]
  - Pulmonary oedema [Recovering/Resolving]
